FAERS Safety Report 6401535-2 (Version None)
Quarter: 2009Q4

REPORT INFORMATION
  Report Type: 
  Country: None (occurrence: None)
  Receive Date: 20091013
  Receipt Date: 20091013
  Transmission Date: 20100525
  Serious: Yes (Other)
  Sender: FDA-Public Use
  Company Number: None

PATIENT
  Age: 61 Year
  Sex: Male
  Weight: 63.5036 kg

DRUGS (1)
  1. REMICADE [Suspect]
     Indication: INFLAMMATORY BOWEL DISEASE
     Dosage: 4 VIALS IV DRIP
     Route: 041
     Dates: start: 20090624, end: 20090818

REACTIONS (9)
  - ARTHRALGIA [None]
  - INFUSION RELATED REACTION [None]
  - JOINT SWELLING [None]
  - LOCAL SWELLING [None]
  - NAUSEA [None]
  - NECK PAIN [None]
  - PAIN IN JAW [None]
  - RASH [None]
  - SYNCOPE [None]
